FAERS Safety Report 9470882 (Version 1)
Quarter: 2013Q3

REPORT INFORMATION
  Report Type: Spontaneous
  Country: US (occurrence: US)
  Receive Date: 20130822
  Receipt Date: 20130822
  Transmission Date: 20140515
  Serious: Yes (Other)
  Sender: FDA-Public Use
  Company Number: US-MYLANLABS-2012S1022481

PATIENT
  Sex: Male

DRUGS (2)
  1. ULTIVA [Suspect]
  2. PROPOFOL [Suspect]

REACTIONS (1)
  - Cardiac arrest [Recovered/Resolved]
